FAERS Safety Report 8225592-6 (Version None)
Quarter: 2012Q1

REPORT INFORMATION
  Report Type: 
  Country: None (occurrence: None)
  Receive Date: 20120321
  Receipt Date: 20120312
  Transmission Date: 20120608
  Serious: Yes (Other)
  Sender: FDA-Public Use
  Company Number: US-JNJFOC-20111211152

PATIENT
  Sex: Male
  Weight: 119.7 kg

DRUGS (12)
  1. REMICADE [Suspect]
     Indication: COLITIS ULCERATIVE
     Route: 042
     Dates: start: 20120213
  2. REMICADE [Suspect]
     Route: 042
     Dates: start: 20111229
  3. LIALDA [Concomitant]
     Indication: COLITIS ULCERATIVE
     Route: 065
  4. METFORMIN HCL [Concomitant]
     Route: 065
  5. MUCINEX D [Concomitant]
     Route: 065
  6. ZOCOR [Concomitant]
     Route: 065
  7. REMICADE [Suspect]
     Route: 042
     Dates: start: 20111114
  8. PAXIL [Concomitant]
     Route: 065
  9. ASPIRIN [Concomitant]
     Route: 065
  10. IMURAN [Concomitant]
     Indication: COLITIS ULCERATIVE
     Route: 065
  11. CALCIUM WITH VITAMIN  D [Concomitant]
     Route: 065
  12. MESALAMINE [Concomitant]
     Dosage: 4 TABLETS DAILY
     Route: 065

REACTIONS (4)
  - FLANK PAIN [None]
  - NAUSEA [None]
  - INTERVERTEBRAL DISC DEGENERATION [None]
  - HERPES ZOSTER [None]
